FAERS Safety Report 14402628 (Version 2)
Quarter: 2019Q1

REPORT INFORMATION
  Report Type: Spontaneous
  Country: US (occurrence: US)
  Receive Date: 20180117
  Receipt Date: 20190227
  Transmission Date: 20190417
  Serious: No
  Sender: FDA-Public Use
  Company Number: US-NOVOPROD-571648

PATIENT
  Age: 55 Year
  Sex: Female

DRUGS (1)
  1. SAXENDA [Suspect]
     Active Substance: LIRAGLUTIDE
     Indication: WEIGHT DECREASED
     Dosage: 3 MG, UNK
     Route: 058
     Dates: start: 201709

REACTIONS (3)
  - Weight loss poor [Recovered/Resolved]
  - Erythema [Unknown]
  - Contusion [Unknown]

NARRATIVE: CASE EVENT DATE: 20171020
